FAERS Safety Report 21873364 (Version 1)
Quarter: 2023Q1

REPORT INFORMATION
  Report Type: Report from Study
  Country: US (occurrence: US)
  Receive Date: 20230117
  Receipt Date: 20230117
  Transmission Date: 20230418
  Serious: Yes (Other)
  Sender: FDA-Public Use
  Company Number: US-PFIZER INC-202200132529

PATIENT
  Sex: Male

DRUGS (3)
  1. LYRICA [Suspect]
     Active Substance: PREGABALIN
     Indication: Neuropathy peripheral
     Dosage: 75 MILLIGRAM, TID (TAKE 1 CAPSULE(S) 3 TIMES A DAY FOR 90 DAYS)
     Route: 048
  2. LYRICA [Suspect]
     Active Substance: PREGABALIN
     Indication: Polyneuropathy
  3. LYRICA [Suspect]
     Active Substance: PREGABALIN
     Indication: Type 1 diabetes mellitus

REACTIONS (3)
  - Intellectual disability [Unknown]
  - Hypoacusis [Unknown]
  - Off label use [Unknown]
